FAERS Safety Report 8491120-3 (Version None)
Quarter: 2012Q3

REPORT INFORMATION
  Report Type: 
  Country: None (occurrence: None)
  Receive Date: 20120706
  Receipt Date: 20120702
  Transmission Date: 20120928
  Serious: Yes (Hospitalization)
  Sender: FDA-Public Use
  Company Number: US-BAYER-2010-000606

PATIENT
  Age: 42 Year
  Sex: Female

DRUGS (7)
  1. CIPROFLOXACIN HCL [Concomitant]
     Dosage: 500 MG, TID
     Route: 048
  2. YASMIN [Suspect]
     Indication: PRODUCT USED FOR UNKNOWN INDICATION
     Dosage: UNK
  3. HYDROCODONE W/ACETYLSALICYLIC ACID [Concomitant]
     Dosage: UNK
     Dates: start: 20090714
  4. SOLU-MEDROL [Concomitant]
     Indication: COMPUTERISED TOMOGRAM
  5. BENADRYL [Concomitant]
     Indication: COMPUTERISED TOMOGRAM
  6. YAZ [Suspect]
     Indication: CONTRACEPTION
     Dosage: UNK
     Dates: start: 20071101, end: 20090801
  7. PREDNISONE TAB [Concomitant]
     Dosage: 20 MG, UNK
     Dates: start: 20090723

REACTIONS (2)
  - PULMONARY EMBOLISM [None]
  - INJURY [None]
